FAERS Safety Report 25528340 (Version 1)
Quarter: 2025Q3

REPORT INFORMATION
  Report Type: Spontaneous
  Country: EU (occurrence: EU)
  Receive Date: 20250708
  Receipt Date: 20250708
  Transmission Date: 20251020
  Serious: Yes (Other)
  Sender: AMGEN
  Company Number: EU-AMGEN-ESPSP2025131198

PATIENT

DRUGS (3)
  1. ROMOSOZUMAB [Suspect]
     Active Substance: ROMOSOZUMAB
     Indication: Osteoporosis
     Route: 065
  2. ROMOSOZUMAB [Suspect]
     Active Substance: ROMOSOZUMAB
  3. PROLIA [Suspect]
     Active Substance: DENOSUMAB
     Indication: Osteoporosis
     Route: 065

REACTIONS (7)
  - Osteoporotic fracture [Unknown]
  - Ischaemic stroke [Unknown]
  - Cardiovascular disorder [Unknown]
  - Skin reaction [Unknown]
  - Myalgia [Unknown]
  - Therapy interrupted [Unknown]
  - Headache [Unknown]
